FAERS Safety Report 8456275-5 (Version None)
Quarter: 2012Q2

REPORT INFORMATION
  Report Type: 
  Country: None (occurrence: None)
  Receive Date: 20120621
  Receipt Date: 20120619
  Transmission Date: 20120825
  Serious: Yes (Life-Threatening, Other)
  Sender: FDA-Public Use
  Company Number: US-ROCHE-1077684

PATIENT
  Sex: Male
  Weight: 120.76 kg

DRUGS (12)
  1. AMLODIPINE [Concomitant]
  2. ACTEMRA [Suspect]
     Indication: RHEUMATOID ARTHRITIS
     Route: 042
     Dates: start: 20110906
  3. CALCITRIOL [Concomitant]
  4. ACETAMINOPHEN [Concomitant]
  5. FOLIC ACID [Concomitant]
  6. GABAPENTIN [Concomitant]
  7. ASPIRIN [Concomitant]
  8. PROBENECID [Concomitant]
  9. LASIX [Concomitant]
  10. CRESTOR [Concomitant]
  11. TRAMADOL HCL [Concomitant]
  12. RANITIDINE [Concomitant]

REACTIONS (1)
  - CEREBROVASCULAR ACCIDENT [None]
